FAERS Safety Report 18918292 (Version 12)
Quarter: 2022Q1

REPORT INFORMATION
  Report Type: Report from Study
  Country: US (occurrence: US)
  Receive Date: 20210219
  Receipt Date: 20220210
  Transmission Date: 20220423
  Serious: Yes (Hospitalization, Other)
  Sender: FDA-Public Use
  Company Number: US-GILEAD-2021-0518037

PATIENT
  Age: 72 Year
  Sex: Male
  Weight: 121.09 kg

DRUGS (30)
  1. REMDESIVIR [Suspect]
     Active Substance: REMDESIVIR
     Indication: COVID-19
     Dosage: 200 MG, ONCE
     Route: 042
     Dates: start: 20210127, end: 20210127
  2. REMDESIVIR [Suspect]
     Active Substance: REMDESIVIR
     Dosage: 100 MG, QD
     Route: 042
     Dates: start: 20210128, end: 20210131
  3. ABATACEPT [Suspect]
     Active Substance: ABATACEPT
     Indication: COVID-19
     Dosage: UNK, ONCE
     Route: 042
     Dates: start: 20210127, end: 20210127
  4. PLACEBO [Suspect]
     Active Substance: UNSPECIFIED INGREDIENT
     Indication: COVID-19
     Dosage: UNK, ONCE
     Route: 042
     Dates: start: 20210127, end: 20210127
  5. AMLODIPINE BESYLATE [Concomitant]
     Active Substance: AMLODIPINE BESYLATE
  6. ATORVASTATIN CALCIUM [Concomitant]
     Active Substance: ATORVASTATIN CALCIUM
  7. CARVEDILOL [Concomitant]
     Active Substance: CARVEDILOL
  8. CHLORTHALIDONE [Concomitant]
     Active Substance: CHLORTHALIDONE
  9. DEXAMETHASONE [Concomitant]
     Active Substance: DEXAMETHASONE
  10. ENOXAPARIN SODIUM [Concomitant]
     Active Substance: ENOXAPARIN SODIUM
     Dosage: UNK
     Dates: start: 20210217
  11. FENTANYL CITRATE [Concomitant]
     Active Substance: FENTANYL CITRATE
  12. FUROSEMIDE [Concomitant]
     Active Substance: FUROSEMIDE
  13. GLIPIZIDE [Concomitant]
     Active Substance: GLIPIZIDE
  14. INSULIN GLARGINE [Concomitant]
     Active Substance: INSULIN GLARGINE
  15. INSULIN LISPRO [Concomitant]
     Active Substance: INSULIN LISPRO
  16. LOSARTAN POTASSIUM [Concomitant]
     Active Substance: LOSARTAN POTASSIUM
  17. PANTOPRAZOLE SODIUM [Concomitant]
     Active Substance: PANTOPRAZOLE SODIUM
  18. ACETAMINOPHEN [Concomitant]
     Active Substance: ACETAMINOPHEN
     Dosage: UNK
     Dates: start: 20210216
  19. PARAFFIN, LIQUID;PETROLATUM [Concomitant]
  20. PIPERACILLIN SODIUM\TAZOBACTAM SODIUM [Concomitant]
     Active Substance: PIPERACILLIN SODIUM\TAZOBACTAM SODIUM
     Dosage: UNK
     Dates: start: 20210217
  21. PROPOFOL [Concomitant]
     Active Substance: PROPOFOL
  22. RIVAROXABAN [Concomitant]
     Active Substance: RIVAROXABAN
  23. SIMVASTATIN [Concomitant]
     Active Substance: SIMVASTATIN
  24. VANCOMYCIN [Concomitant]
     Active Substance: VANCOMYCIN
     Dosage: UNK
     Dates: start: 20210217
  25. HEPARIN [Concomitant]
     Active Substance: HEPARIN SODIUM
  26. ALLOPURINOL [Concomitant]
     Active Substance: ALLOPURINOL
  27. HYDROCORTISONE SODIUM SUCCINATE [Concomitant]
     Active Substance: HYDROCORTISONE SODIUM SUCCINATE
  28. PREDNISONE [Concomitant]
     Active Substance: PREDNISONE
  29. NOREPINEPHRINE BITARTRATE [Concomitant]
     Active Substance: NOREPINEPHRINE BITARTRATE
  30. PIPERACILLIN AND TAZOBACTAM [Concomitant]
     Active Substance: PIPERACILLIN SODIUM\TAZOBACTAM SODIUM

REACTIONS (1)
  - Abscess limb [Recovered/Resolved]

NARRATIVE: CASE EVENT DATE: 20210216
